FAERS Safety Report 11118026 (Version 6)
Quarter: 2016Q2

REPORT INFORMATION
  Report Type: Report from Study
  Country: DE (occurrence: DE)
  Receive Date: 20150518
  Receipt Date: 20160420
  Transmission Date: 20160815
  Serious: Yes (Hospitalization)
  Sender: FDA-Public Use
  Company Number: DE-ROCHE-1577493

PATIENT
  Age: 53 Year
  Sex: Female
  Weight: 73.6 kg

DRUGS (12)
  1. BEVACIZUMAB [Suspect]
     Active Substance: BEVACIZUMAB
     Route: 042
     Dates: start: 20151201
  2. 5-FLUOROURACIL [Concomitant]
     Active Substance: FLUOROURACIL
     Indication: COLORECTAL CANCER
     Route: 041
     Dates: start: 20141110, end: 20150812
  3. 5-FLUOROURACIL [Concomitant]
     Active Substance: FLUOROURACIL
     Route: 041
     Dates: start: 20150831, end: 20151203
  4. MONO-EMBOLEX [Concomitant]
     Active Substance: CERTOPARIN SODIUM
     Route: 058
     Dates: start: 20160118
  5. FOLINIC ACID [Concomitant]
     Active Substance: LEUCOVORIN
     Route: 042
     Dates: start: 20150915, end: 20151201
  6. TRAMAL LONG [Concomitant]
     Active Substance: TRAMADOL
     Route: 048
     Dates: start: 20160309
  7. IRINOTECAN [Concomitant]
     Active Substance: IRINOTECAN
     Indication: COLORECTAL CANCER
     Route: 042
     Dates: start: 20150831, end: 20151201
  8. IBUPROFEN. [Concomitant]
     Active Substance: IBUPROFEN
     Route: 048
     Dates: start: 20160309
  9. BEVACIZUMAB [Suspect]
     Active Substance: BEVACIZUMAB
     Indication: COLORECTAL CANCER METASTATIC
     Route: 042
     Dates: start: 20141110
  10. BEVACIZUMAB [Suspect]
     Active Substance: BEVACIZUMAB
     Dosage: LAST DOSE PRIOR TO SAE FEVER
     Route: 042
     Dates: start: 20150421
  11. FOLINIC ACID [Concomitant]
     Active Substance: LEUCOVORIN
     Indication: COLORECTAL CANCER
     Route: 042
     Dates: start: 20141110, end: 20150811
  12. FOLINIC ACID [Concomitant]
     Active Substance: LEUCOVORIN
     Route: 042
     Dates: start: 20150831, end: 20150831

REACTIONS (1)
  - Pyrexia [Not Recovered/Not Resolved]

NARRATIVE: CASE EVENT DATE: 20150502
